FAERS Safety Report 17657077 (Version 1)
Quarter: 2020Q2

REPORT INFORMATION
  Report Type: Spontaneous
  Country: DE (occurrence: DE)
  Receive Date: 20200410
  Receipt Date: 20200410
  Transmission Date: 20200713
  Serious: Yes (Other)
  Sender: FDA-Public Use
  Company Number: DE-ASCEND THERAPEUTICS US, LLC-2082640

PATIENT
  Age: 56 Year
  Sex: Female

DRUGS (4)
  1. GYNOKADIN (ESTRADIOL HEMIHYDRATE) (GEL) 191095 [Suspect]
     Active Substance: ESTRADIOL HEMIHYDRATE
  2. ESTROGEL [Suspect]
     Active Substance: ESTRADIOL
     Indication: MENOPAUSAL SYMPTOMS
     Dates: start: 20200203, end: 20200303
  3. BISOPROLOL (BISPPROLOL) UNKNOWN [Concomitant]
  4. FAMENITA (PROGESTERONE) ?INDICATION FOR USE: MENOPAUSAL SYMPTOMS [Suspect]
     Active Substance: PROGESTERONE
     Route: 048
     Dates: start: 20200203, end: 20200303

REACTIONS (3)
  - Condition aggravated [Recovering/Resolving]
  - Anxiety [Unknown]
  - Arrhythmia [Recovering/Resolving]

NARRATIVE: CASE EVENT DATE: 20200203
